FAERS Safety Report 4808941-8 (Version None)
Quarter: 2005Q4

REPORT INFORMATION
  Report Type: 
  Country: None (occurrence: None)
  Receive Date: 20051021
  Receipt Date: 20050526
  Transmission Date: 20060501
  Serious: No
  Sender: FDA-Public Use
  Company Number: EWC050644371

PATIENT
  Age: 37 Year
  Sex: Female
  Weight: 68 kg

DRUGS (2)
  1. OLANZAPINE [Suspect]
     Indication: BIPOLAR DISORDER
     Dosage: 10 MG/1 DAY
     Route: 048
     Dates: start: 20050401
  2. LITHIUM [Concomitant]

REACTIONS (1)
  - POLYMENORRHOEA [None]
